FAERS Safety Report 23452509 (Version 1)
Quarter: 2024Q1

REPORT INFORMATION
  Report Type: Spontaneous
  Country: US (occurrence: US)
  Receive Date: 20240129
  Receipt Date: 20240129
  Transmission Date: 20240410
  Serious: No
  Sender: FDA-Public Use
  Company Number: US-SA-SAC20240122001422

PATIENT
  Age: 47 Year
  Sex: Male

DRUGS (1)
  1. DUPIXENT [Suspect]
     Active Substance: DUPILUMAB
     Dosage: 300 MG, QOW
     Route: 058

REACTIONS (9)
  - Pruritus [Unknown]
  - Therapeutic response decreased [Unknown]
  - Dry skin [Unknown]
  - Skin exfoliation [Unknown]
  - Vision blurred [Unknown]
  - Skin fissures [Unknown]
  - Sleep disorder [Unknown]
  - Mobility decreased [Unknown]
  - Dry eye [Unknown]
